FAERS Safety Report 9011175 (Version 2)
Quarter: 2013Q1

REPORT INFORMATION
  Report Type: Spontaneous
  Country: US (occurrence: US)
  Receive Date: 20130109
  Receipt Date: 20130325
  Transmission Date: 20140127
  Serious: Yes (Death)
  Sender: FDA-Public Use
  Company Number: US-PFIZER INC-2013006237

PATIENT
  Age: 54 Year
  Sex: Female

DRUGS (9)
  1. AMLODIPINE BESILATE [Suspect]
     Dosage: UNK
     Route: 048
  2. GABAPENTIN [Suspect]
     Dosage: UNK
     Route: 048
  3. HYDROXYZINE PAMOATE [Suspect]
     Dosage: UNK
     Route: 048
  4. FLUOXETINE [Suspect]
     Dosage: UNK
     Route: 048
  5. LISINOPRIL [Suspect]
     Dosage: UNK
     Route: 048
  6. BUSPIRONE [Suspect]
     Dosage: UNK
     Route: 048
  7. LAMOTRIGINE [Suspect]
     Dosage: UNK
     Route: 048
  8. RISPERIDONE [Suspect]
     Dosage: UNK
     Route: 048
  9. OXCARBAZEPINE [Suspect]
     Dosage: UNK

REACTIONS (1)
  - Completed suicide [Fatal]
